FAERS Safety Report 22124978 (Version 1)
Quarter: 2023Q1

REPORT INFORMATION
  Report Type: Spontaneous
  Country: GB (occurrence: GB)
  Receive Date: 20230322
  Receipt Date: 20230322
  Transmission Date: 20230417
  Serious: Yes (Other)
  Sender: FDA-Public Use
  Company Number: GB-MHRA-MED-202303081241331470-CFJMK

PATIENT

DRUGS (3)
  1. PREDNISOLONE [Suspect]
     Active Substance: PREDNISOLONE
     Indication: Nasal polyps
     Dosage: 60 MG, QD(60MG DAILY FOR 3 DAYS, 40MG DAILY FOR 3 DAYS THE 20MG DAILY FOR 5 DAYS),TABLET
     Dates: start: 20230301
  2. PREDNISOLONE [Suspect]
     Active Substance: PREDNISOLONE
     Dosage: 40 MG, QD(60MG DAILY FOR 3 DAYS, 40MG DAILY FOR 3 DAYS THE 20MG DAILY FOR 5 DAYS),TABLET
     Dates: start: 20230301
  3. PREDNISOLONE [Suspect]
     Active Substance: PREDNISOLONE
     Dosage: 20 MG, QD(60MG DAILY FOR 3 DAYS, 40MG DAILY FOR 3 DAYS THE 20MG DAILY FOR 5 DAYS),TABLET
     Dates: start: 20230301

REACTIONS (1)
  - Central serous chorioretinopathy [Not Recovered/Not Resolved]

NARRATIVE: CASE EVENT DATE: 20230307
